FAERS Safety Report 15728844 (Version 2)
Quarter: 2020Q1

REPORT INFORMATION
  Report Type: Spontaneous
  Country: AU (occurrence: AU)
  Receive Date: 20181217
  Receipt Date: 20200330
  Transmission Date: 20200409
  Serious: Yes (Other)
  Sender: FDA-Public Use
  Company Number: AU-009507513-1812AUS007827

PATIENT
  Sex: Female

DRUGS (1)
  1. IMPLANON NXT [Suspect]
     Active Substance: ETONOGESTREL
     Dosage: 1 DOSAGE FORM
     Route: 059
     Dates: start: 201812

REACTIONS (5)
  - Swelling [Unknown]
  - Pain [Unknown]
  - Cellulitis [Unknown]
  - Contusion [Unknown]
  - Discomfort [Unknown]

NARRATIVE: CASE EVENT DATE: 201812
